FAERS Safety Report 12991130 (Version 4)
Quarter: 2017Q3

REPORT INFORMATION
  Report Type: Spontaneous
  Country: JP (occurrence: JP)
  Receive Date: 20161201
  Receipt Date: 20170710
  Transmission Date: 20171127
  Serious: Yes (Hospitalization)
  Sender: FDA-Public Use
  Company Number: JP-NOVOPROD-520742

PATIENT
  Age: 74 Year
  Sex: Female
  Weight: 48 kg

DRUGS (6)
  1. TAKEPRON [Suspect]
     Active Substance: LANSOPRAZOLE
     Indication: PRODUCT USED FOR UNKNOWN INDICATION
     Dosage: 15 MG, QD
     Route: 048
     Dates: start: 20120106
  2. NOVORAPID [Suspect]
     Active Substance: INSULIN ASPART
     Indication: TYPE 2 DIABETES MELLITUS
     Dosage: 26 IU, QD (18-0-8)
     Route: 058
     Dates: start: 20150811
  3. PLAVIX [Suspect]
     Active Substance: CLOPIDOGREL BISULFATE
     Indication: PRODUCT USED FOR UNKNOWN INDICATION
     Dosage: 75 MG, QD
     Route: 048
     Dates: start: 20120106
  4. NOVORAPID [Suspect]
     Active Substance: INSULIN ASPART
     Dosage: 26 IU, QD
     Route: 058
     Dates: start: 20160517
  5. NOVORAPID [Suspect]
     Active Substance: INSULIN ASPART
     Dosage: 1800 UNITS
     Route: 058
     Dates: start: 20160105
  6. ASPIRIN                            /00002701/ [Suspect]
     Active Substance: ASPIRIN
     Indication: PRODUCT USED FOR UNKNOWN INDICATION
     Dosage: 100 MG, QD
     Route: 048
     Dates: start: 20120531

REACTIONS (3)
  - Suicide attempt [Recovered/Resolved]
  - Hypoglycaemic coma [Recovered/Resolved]
  - Intentional overdose [Recovered/Resolved]

NARRATIVE: CASE EVENT DATE: 20160105
